FAERS Safety Report 26111938 (Version 1)
Quarter: 2025Q4

REPORT INFORMATION
  Report Type: Report from Study
  Country: EU (occurrence: EU)
  Receive Date: 20251202
  Receipt Date: 20251202
  Transmission Date: 20260118
  Serious: Yes (Life-Threatening)
  Sender: MDD OPERATIONS
  Company Number: EU-MDD US Operations-MDD202511-004950

PATIENT
  Age: 77 Year
  Sex: Male

DRUGS (1)
  1. APOMORPHINE [Suspect]
     Active Substance: APOMORPHINE
     Indication: Parkinson^s disease
     Dosage: 3E TWICE DAILY
     Route: 058
     Dates: start: 20251002, end: 2025

REACTIONS (1)
  - Atrial fibrillation [Recovered/Resolved]
